FAERS Safety Report 5508619-1 (Version None)
Quarter: 2007Q4

REPORT INFORMATION
  Report Type: 
  Country: None (occurrence: None)
  Receive Date: 20071107
  Receipt Date: 20071102
  Transmission Date: 20080405
  Serious: Yes (Hospitalization)
  Sender: FDA-Public Use
  Company Number: US-BRISTOL-MYERS SQUIBB COMPANY-13967914

PATIENT
  Age: 77 Year
  Sex: Female

DRUGS (1)
  1. TEQUIN [Suspect]
     Indication: URINARY TRACT INFECTION

REACTIONS (1)
  - SHOCK HYPOGLYCAEMIC [None]
